FAERS Safety Report 20562572 (Version 1)
Quarter: 2022Q1

REPORT INFORMATION
  Report Type: Spontaneous
  Country: US (occurrence: None)
  Receive Date: 20220307
  Receipt Date: 20220307
  Transmission Date: 20220423
  Serious: Yes (Life-Threatening, Hospitalization)
  Sender: FDA-Public Use
  Company Number: None

PATIENT
  Age: 76 Year
  Sex: Female
  Weight: 82.1 kg

DRUGS (14)
  1. CILGAVIMAB\TIXAGEVIMAB [Suspect]
     Active Substance: CILGAVIMAB\TIXAGEVIMAB
     Indication: COVID-19 prophylaxis
     Dosage: OTHER FREQUENCY : ONCE;?
     Route: 030
     Dates: start: 20220131, end: 20220131
  2. AZATHIOPRINE [Concomitant]
     Active Substance: AZATHIOPRINE
  3. AZITHROMYCIN [Concomitant]
     Active Substance: AZITHROMYCIN
  4. TACROLIMUS [Concomitant]
     Active Substance: TACROLIMUS
  5. ACYCLOVIR [Concomitant]
     Active Substance: ACYCLOVIR
  6. SULFAMETHOXAZOLE\TRIMETHOPRIM [Concomitant]
     Active Substance: SULFAMETHOXAZOLE\TRIMETHOPRIM
  7. ATORVASTATIN [Concomitant]
     Active Substance: ATORVASTATIN
  8. DIGOXIN [Concomitant]
     Active Substance: DIGOXIN
  9. LEVOTHYROXINE [Concomitant]
     Active Substance: LEVOTHYROXINE
  10. LOSARTAN [Concomitant]
     Active Substance: LOSARTAN
  11. METOPROLOL [Concomitant]
     Active Substance: METOPROLOL
  12. OMEPRAZOLE [Concomitant]
     Active Substance: OMEPRAZOLE
  13. SITAGLIPTIN [Concomitant]
     Active Substance: SITAGLIPTIN
  14. WARFARIN [Concomitant]
     Active Substance: WARFARIN

REACTIONS (4)
  - Platelet count decreased [None]
  - Pancytopenia [None]
  - Haemoglobin decreased [None]
  - White blood cell count decreased [None]
